FAERS Safety Report 23401446 (Version 2)
Quarter: 2024Q1

REPORT INFORMATION
  Report Type: Spontaneous
  Country: ES (occurrence: ES)
  Receive Date: 20240115
  Receipt Date: 20240205
  Transmission Date: 20240409
  Serious: Yes (Hospitalization, Other)
  Sender: FDA-Public Use
  Company Number: ES-Blueprint Medicines Corporation-SP-ES-2023-001669

PATIENT
  Sex: Female
  Weight: 68 kg

DRUGS (9)
  1. HALOPERIDOL [Suspect]
     Active Substance: HALOPERIDOL
     Indication: Confusional state
     Route: 065
     Dates: start: 20230224, end: 20230622
  2. HALOPERIDOL [Suspect]
     Active Substance: HALOPERIDOL
     Indication: Agitation
  3. DULOXETINE [Suspect]
     Active Substance: DULOXETINE
     Indication: Depression
     Route: 048
     Dates: start: 20231127, end: 20231227
  4. SERTRALINE [Suspect]
     Active Substance: SERTRALINE HYDROCHLORIDE
     Indication: Anxiety
     Route: 048
     Dates: start: 20231025, end: 20231127
  5. SERTRALINE [Suspect]
     Active Substance: SERTRALINE HYDROCHLORIDE
     Indication: Panic attack
     Route: 065
  6. SERTRALINE [Suspect]
     Active Substance: SERTRALINE HYDROCHLORIDE
     Indication: Depression
     Route: 065
  7. AVAPRITINIB [Suspect]
     Active Substance: AVAPRITINIB
     Indication: Gastrointestinal stromal tumour
     Route: 065
  8. AVAPRITINIB [Suspect]
     Active Substance: AVAPRITINIB
     Route: 065
  9. METOCLOPRAMIDE [Concomitant]
     Active Substance: METOCLOPRAMIDE
     Indication: Nausea
     Route: 065
     Dates: start: 20230602, end: 20230628

REACTIONS (10)
  - Lacunar stroke [Unknown]
  - Haemorrhage subcutaneous [Recovered/Resolved]
  - Persistent postural-perceptual dizziness [Unknown]
  - Parkinsonism [Recovered/Resolved]
  - Anxiety [Unknown]
  - Neurotoxicity [Not Recovered/Not Resolved]
  - Asthenia [Recovered/Resolved]
  - Carotid arteriosclerosis [Unknown]
  - Depression [Unknown]
  - Insomnia [Unknown]
